FAERS Safety Report 15574655 (Version 2)
Quarter: 2019Q1

REPORT INFORMATION
  Report Type: Spontaneous
  Country: US (occurrence: US)
  Receive Date: 20181101
  Receipt Date: 20190208
  Transmission Date: 20190417
  Serious: Yes (Other)
  Sender: FDA-Public Use
  Company Number: US-NOVOPROD-615511

PATIENT
  Age: 49 Year
  Sex: Male

DRUGS (1)
  1. NOVOLOG [Suspect]
     Active Substance: INSULIN ASPART
     Indication: DIABETES MELLITUS
     Dosage: 60 UNITS IN 10 HOURS
     Route: 058

REACTIONS (4)
  - Blood glucose increased [Recovered/Resolved]
  - Drug ineffective [Unknown]
  - Product quality issue [Unknown]
  - Infection [Unknown]

NARRATIVE: CASE EVENT DATE: 20180805
